FAERS Safety Report 7932857-1 (Version None)
Quarter: 2011Q4

REPORT INFORMATION
  Report Type: 
  Country: None (occurrence: None)
  Receive Date: 20111122
  Receipt Date: 20111118
  Transmission Date: 20120403
  Serious: Yes (Other)
  Sender: FDA-Public Use
  Company Number: US-PFIZER INC-2011283289

PATIENT
  Sex: Female
  Weight: 47.2 kg

DRUGS (2)
  1. MEDROXYPROGESTERONE ACETATE [Suspect]
     Indication: OFF LABEL USE
     Dosage: 10 MG, 1X/DAY
     Route: 048
     Dates: start: 20111011, end: 20111014
  2. MEDROXYPROGESTERONE ACETATE [Suspect]
     Indication: HYPERPLASIA

REACTIONS (6)
  - EATING DISORDER [None]
  - FLUID INTAKE REDUCED [None]
  - ANAEMIA [None]
  - WEIGHT DECREASED [None]
  - ABDOMINAL PAIN UPPER [None]
  - INSOMNIA [None]
